FAERS Safety Report 8060719-0 (Version None)
Quarter: 2012Q1

REPORT INFORMATION
  Report Type: 
  Country: None (occurrence: None)
  Receive Date: 20120120
  Receipt Date: 20120113
  Transmission Date: 20120608
  Serious: Yes (Life-Threatening, Hospitalization)
  Sender: FDA-Public Use
  Company Number: CA-ROCHE-1031334

PATIENT
  Sex: Female

DRUGS (4)
  1. XOLAIR [Suspect]
     Indication: ASTHMA
     Route: 058
     Dates: start: 20110613
  2. INSULIN [Concomitant]
  3. VENTOLIN [Concomitant]
  4. SYMBICORT [Concomitant]

REACTIONS (6)
  - VOMITING [None]
  - PAIN IN EXTREMITY [None]
  - NAUSEA [None]
  - ATRIOVENTRICULAR BLOCK [None]
  - CARDIAC ENZYMES INCREASED [None]
  - BLOOD PRESSURE INCREASED [None]
